FAERS Safety Report 6222904-X (Version None)
Quarter: 2009Q2

REPORT INFORMATION
  Report Type: 
  Country: None (occurrence: None)
  Receive Date: 20090611
  Receipt Date: 20090605
  Transmission Date: 20091009
  Serious: Yes (Death, Life-Threatening)
  Sender: FDA-Public Use
  Company Number: JP-BAYER-200911889BYL

PATIENT
  Age: 42 Year
  Sex: Male
  Weight: 55 kg

DRUGS (7)
  1. FLUDARA [Suspect]
     Indication: CORD BLOOD TRANSPLANT THERAPY
     Dosage: UNIT DOSE: 50 MG
     Route: 042
     Dates: start: 20081015, end: 20081020
  2. ALKERAN [Suspect]
     Indication: CORD BLOOD TRANSPLANT THERAPY
     Route: 042
     Dates: start: 20081017, end: 20081018
  3. HABEKACIN [Suspect]
     Indication: INFECTION
     Route: 042
     Dates: start: 20081030, end: 20081105
  4. PROGRAF [Suspect]
     Indication: PROPHYLAXIS AGAINST GRAFT VERSUS HOST DISEASE
     Route: 042
     Dates: start: 20081022, end: 20081109
  5. VANCOMYCIN HCL [Suspect]
     Indication: INFECTION
     Route: 042
     Dates: start: 20081106, end: 20081109
  6. CONCENTRATED RED CELLS [Concomitant]
     Route: 042
     Dates: start: 20081002, end: 20081126
  7. PLATELETS [Concomitant]
     Route: 042
     Dates: start: 20080923, end: 20081125

REACTIONS (4)
  - ELECTROLYTE IMBALANCE [None]
  - HEPATIC FAILURE [None]
  - RENAL FAILURE [None]
  - SEPSIS [None]
